FAERS Safety Report 9106274 (Version 1)
Quarter: 2013Q1

REPORT INFORMATION
  Report Type: Spontaneous
  Country: FR (occurrence: FR)
  Receive Date: 20130220
  Receipt Date: 20130220
  Transmission Date: 20140127
  Serious: Yes (Hospitalization)
  Sender: FDA-Public Use
  Company Number: FR-ROCHE-1192674

PATIENT
  Age: 35 Year
  Sex: Male

DRUGS (3)
  1. COPEGUS [Suspect]
     Indication: CHRONIC HEPATITIS C
     Dosage: 400 MG
     Route: 048
     Dates: start: 20111122, end: 20121023
  2. PEGASYS [Suspect]
     Indication: CHRONIC HEPATITIS C
     Dosage: 180 MCG
     Route: 058
     Dates: start: 20111122, end: 20121023
  3. VICTRELIS [Concomitant]
     Route: 065
     Dates: start: 20120111

REACTIONS (2)
  - Psoriasis [Not Recovered/Not Resolved]
  - Eczema [Not Recovered/Not Resolved]
